FAERS Safety Report 24417349 (Version 1)
Quarter: 2024Q4

REPORT INFORMATION
  Report Type: Spontaneous
  Country: JP (occurrence: JP)
  Receive Date: 20241009
  Receipt Date: 20241009
  Transmission Date: 20250114
  Serious: Yes (Other)
  Sender: FERRING
  Company Number: JP-ferring-EVA202400999FERRINGPH

PATIENT

DRUGS (2)
  1. NOCDURNA [Suspect]
     Active Substance: DESMOPRESSIN ACETATE
     Indication: Product used for unknown indication
     Dosage: 25UG OR 50UG
     Route: 048
  2. BUDEFORU [Concomitant]
     Indication: Asthma
     Dosage: UNK
     Route: 065

REACTIONS (4)
  - Asthma [Unknown]
  - Treatment noncompliance [Unknown]
  - Contraindicated product administered [Unknown]
  - Labelled drug-drug interaction issue [Unknown]
